FAERS Safety Report 8605633-4 (Version None)
Quarter: 2012Q3

REPORT INFORMATION
  Report Type: 
  Country: None (occurrence: None)
  Receive Date: 20120820
  Receipt Date: 20120814
  Transmission Date: 20120928
  Serious: Yes (Other)
  Sender: FDA-Public Use
  Company Number: US-FRI-1000037076

PATIENT
  Sex: Female
  Weight: 73 kg

DRUGS (12)
  1. VIIBRYD [Suspect]
     Indication: DEPRESSION
  2. GLUCOSAMINE [Concomitant]
  3. ASPIRIN [Concomitant]
     Indication: PAIN
  4. VIIBRYD [Suspect]
     Dosage: 20 MG
     Route: 048
     Dates: start: 20120101, end: 20120713
  5. VIIBRYD [Suspect]
  6. PRISTIQ [Suspect]
     Indication: ANXIETY
     Dosage: 50 MG
     Dates: start: 20120713, end: 20120716
  7. FISH OIL [Concomitant]
     Indication: BLOOD CHOLESTEROL INCREASED
  8. VIIBRYD [Suspect]
     Indication: ANXIETY
     Dosage: 10 MG
     Route: 048
     Dates: start: 20120508, end: 20120101
  9. LEVOTHYROXINE SODIUM [Concomitant]
     Dosage: 75 MCG
  10. CHONDROITIN [Concomitant]
  11. CITALOPRAM HYDROBROMIDE [Suspect]
     Dosage: 20 MG
     Dates: start: 20090101, end: 20120501
  12. PRISTIQ [Suspect]
     Indication: DEPRESSION

REACTIONS (15)
  - PANIC ATTACK [None]
  - ANXIETY [None]
  - OFF LABEL USE [None]
  - DIARRHOEA [None]
  - RETCHING [None]
  - NAUSEA [None]
  - DEPRESSIVE SYMPTOM [None]
  - WEIGHT DECREASED [None]
  - HYPERHIDROSIS [None]
  - ABNORMAL DREAMS [None]
  - ASTHENIA [None]
  - PALPITATIONS [None]
  - PAROSMIA [None]
  - PANIC DISORDER [None]
  - INSOMNIA [None]
